FAERS Safety Report 23762462 (Version 1)
Quarter: 2024Q2

REPORT INFORMATION
  Report Type: Spontaneous
  Country: KR (occurrence: None)
  Receive Date: 20240419
  Receipt Date: 20240419
  Transmission Date: 20240716
  Serious: Yes (Death, Other)
  Sender: FDA-Public Use
  Company Number: 2024A091788

PATIENT
  Age: 38 Year
  Sex: Female

DRUGS (9)
  1. GEFITINIB [Suspect]
     Active Substance: GEFITINIB
     Indication: Non-small cell lung cancer
     Route: 048
     Dates: start: 201811
  2. OSIMERTINIB [Suspect]
     Active Substance: OSIMERTINIB
     Route: 048
  3. PEMETREXED [Suspect]
     Active Substance: PEMETREXED
  4. ATEZOLIZUMAB [Concomitant]
     Active Substance: ATEZOLIZUMAB
  5. BEVACIZUMAB [Concomitant]
     Active Substance: BEVACIZUMAB
  6. PACLITAXEL [Concomitant]
     Active Substance: PACLITAXEL
  7. CARBOPLATIN [Concomitant]
     Active Substance: CARBOPLATIN
  8. ATEZOLIZUMAB [Concomitant]
     Active Substance: ATEZOLIZUMAB
  9. BEVACIZUMAB [Concomitant]
     Active Substance: BEVACIZUMAB

REACTIONS (5)
  - Malignant neoplasm progression [Fatal]
  - Metastases to meninges [Unknown]
  - Metastases to central nervous system [Unknown]
  - Myalgia [Unknown]
  - Abdominal pain [Unknown]
